FAERS Safety Report 8651346 (Version 3)
Quarter: 2012Q4

REPORT INFORMATION
  Report Type: Report from Study
  Country: FR (occurrence: FR)
  Receive Date: 20120705
  Receipt Date: 20120928
  Transmission Date: 20130627
  Serious: Yes (Other)
  Sender: FDA-Public Use
  Company Number: FR-CELGENEUS-056-C5013-12063481

PATIENT
  Age: 75 Year
  Sex: Male
  Weight: 75 kg

DRUGS (9)
  1. CC-5013 [Suspect]
     Indication: MULTIPLE MYELOMA
     Dosage: 25 Milligram
     Route: 048
     Dates: start: 20090611
  2. CC-5013 [Suspect]
     Route: 048
     Dates: end: 20101005
  3. DEXAMETHASONE [Suspect]
     Indication: MULTIPLE MYELOMA
     Dosage: 40 Milligram
     Route: 065
     Dates: start: 20090611
  4. DEXAMETHASONE [Suspect]
     Route: 065
     Dates: end: 20101002
  5. LASILIX [Concomitant]
     Indication: OEDEMA LOWER LIMB
     Dosage: 40 Milligram
     Route: 048
     Dates: start: 20110322
  6. PARACETAMOL [Concomitant]
     Indication: LUMBAR PAIN
     Route: 048
     Dates: start: 201106
  7. COVERSYL [Concomitant]
     Indication: CARDIAC DISORDER PROPHYLAXIS
     Dosage: 10 Milligram
     Route: 048
     Dates: start: 201103
  8. CORDARONE [Concomitant]
     Indication: CARDIAC DISORDER PROPHYLAXIS
     Dosage: 200 Milligram
     Route: 048
     Dates: start: 201103
  9. KARDEGIC [Concomitant]
     Indication: THROMBOSIS PROPHYLAXIS
     Dosage: 75 Milligram
     Route: 048
     Dates: start: 20101124

REACTIONS (1)
  - Basal cell carcinoma [Recovered/Resolved]
